FAERS Safety Report 8590853-8 (Version None)
Quarter: 2012Q3

REPORT INFORMATION
  Report Type: 
  Country: None (occurrence: None)
  Receive Date: 20120813
  Receipt Date: 20120808
  Transmission Date: 20120928
  Serious: Yes (Hospitalization)
  Sender: FDA-Public Use
  Company Number: NL-GENZYME-CAMP-1002370

PATIENT
  Age: 55 Year
  Sex: Female

DRUGS (1)
  1. MABCAMPATH [Suspect]
     Indication: RENAL TRANSPLANT
     Dosage: UNK, UNK
     Route: 065

REACTIONS (2)
  - OFF LABEL USE [None]
  - HYPERSENSITIVITY [None]
